FAERS Safety Report 11164728 (Version 2)
Quarter: 2015Q3

REPORT INFORMATION
  Report Type: Spontaneous
  Country: IT (occurrence: IT)
  Receive Date: 20150604
  Receipt Date: 20150807
  Transmission Date: 20151125
  Serious: Yes (Hospitalization)
  Sender: FDA-Public Use
  Company Number: IT-SA-2015SA076789

PATIENT
  Age: 83 Year
  Sex: Male

DRUGS (4)
  1. METFORMIN HYDROCHLORIDE. [Suspect]
     Active Substance: METFORMIN HYDROCHLORIDE
     Indication: DIABETES MELLITUS
     Route: 048
     Dates: start: 20150101, end: 20150316
  2. LANTUS [Suspect]
     Active Substance: INSULIN GLARGINE
     Indication: DIABETES MELLITUS
     Dosage: DOSE:1 UNIT(S)
     Route: 058
     Dates: start: 20150101, end: 20150316
  3. CLOPIXOL [Concomitant]
     Active Substance: ZUCLOPENTHIXOL ACETATE
  4. EXELON [Concomitant]
     Active Substance: RIVASTIGMINE TARTRATE

REACTIONS (2)
  - Dyspnoea [Unknown]
  - Hypoglycaemia [Unknown]

NARRATIVE: CASE EVENT DATE: 20150316
